FAERS Safety Report 20242808 (Version 2)
Quarter: 2022Q1

REPORT INFORMATION
  Report Type: Spontaneous
  Country: CA (occurrence: PT)
  Receive Date: 20211228
  Receipt Date: 20220118
  Transmission Date: 20220423
  Serious: No
  Sender: FDA-Public Use
  Company Number: CA-BAXTER-2021BAX041939

PATIENT
  Age: 54 Year
  Sex: Female

DRUGS (1)
  1. CALCIUM CL\DEXTROSE\MAGNESIUM CL\SODIUM BICAR\SODIUM CL\SODIUM LACT [Suspect]
     Active Substance: CALCIUM CL\DEXTROSE\MAGNESIUM CL\SODIUM BICAR\SODIUM CL\SODIUM LACT
     Indication: Peritoneal dialysis
     Route: 033

REACTIONS (2)
  - Alopecia [Recovered/Resolved]
  - Rash [Recovered/Resolved]
